FAERS Safety Report 5084737-X (Version None)
Quarter: 2006Q3

REPORT INFORMATION
  Report Type: 
  Country: None (occurrence: None)
  Receive Date: 20060815
  Receipt Date: 20060728
  Transmission Date: 20061208
  Serious: Yes (Other)
  Sender: FDA-Public Use
  Company Number: FR200607005232

PATIENT
  Age: 62 Year
  Sex: Female

DRUGS (4)
  1. EVISTA [Suspect]
     Indication: OSTEOPOROSIS
     Dosage: 60 MG, DAILY (1/D), ORAL
     Route: 048
     Dates: start: 20060401
  2. LODOZ (BISOPROLOL FUMARATE, HYDROCHLOROTHIAZIDE) [Concomitant]
  3. ALDACTONE [Concomitant]
  4. MOBIC [Concomitant]

REACTIONS (1)
  - HYPERTRIGLYCERIDAEMIA [None]
